FAERS Safety Report 5749678-0 (Version None)
Quarter: 2008Q2

REPORT INFORMATION
  Report Type: 
  Country: None (occurrence: None)
  Receive Date: 20080527
  Receipt Date: 20080523
  Transmission Date: 20081010
  Serious: Yes (Other)
  Sender: FDA-Public Use
  Company Number: ES-BRISTOL-MYERS SQUIBB COMPANY-14202253

PATIENT
  Age: 43 Year
  Sex: Female

DRUGS (1)
  1. REYATAZ [Suspect]
     Indication: HIV INFECTION
     Route: 048
     Dates: start: 20060101

REACTIONS (5)
  - BLOOD BILIRUBIN INCREASED [None]
  - LOSS OF CONSCIOUSNESS [None]
  - NEPHROLITHIASIS [None]
  - PORPHYRIA [None]
  - RENAL COLIC [None]
